FAERS Safety Report 5554263-X (Version None)
Quarter: 2007Q4

REPORT INFORMATION
  Report Type: 
  Country: None (occurrence: None)
  Receive Date: 20071213
  Receipt Date: 20071211
  Transmission Date: 20080405
  Serious: Yes (Hospitalization)
  Sender: FDA-Public Use
  Company Number: A0698320A

PATIENT
  Age: 65 Year
  Sex: Male

DRUGS (7)
  1. AVODART [Suspect]
     Dosage: .5MG PER DAY
     Route: 048
     Dates: start: 20060601
  2. TOPROL-XL [Concomitant]
  3. PLAVIX [Concomitant]
  4. FISH OIL [Concomitant]
  5. ENTERIC COAT ASPIRIN [Concomitant]
  6. VITAMINS [Concomitant]
  7. VYTORIN [Concomitant]

REACTIONS (4)
  - ARTERIAL OCCLUSIVE DISEASE [None]
  - CHEST PAIN [None]
  - DIZZINESS [None]
  - PROSTATIC SPECIFIC ANTIGEN DECREASED [None]
